FAERS Safety Report 5212924-6 (Version None)
Quarter: 2007Q1

REPORT INFORMATION
  Report Type: 
  Country: None (occurrence: None)
  Receive Date: 20070118
  Receipt Date: 20070118
  Transmission Date: 20070707
  Serious: No
  Sender: FDA-Public Use
  Company Number: None

PATIENT

DRUGS (2)
  1. NEURONTIN [Suspect]
     Dosage: VIAL 40 DRAM  TABLET
  2. ZOLOFT [Suspect]
     Dosage: VIAL 13 DRAM   TABLET

REACTIONS (2)
  - DRUG DISPENSING ERROR [None]
  - MEDICATION ERROR [None]
